FAERS Safety Report 23446977 (Version 1)
Quarter: 2024Q1

REPORT INFORMATION
  Report Type: Spontaneous
  Country: US (occurrence: None)
  Receive Date: 20240125
  Receipt Date: 20240125
  Transmission Date: 20240410
  Serious: Yes (Hospitalization)
  Sender: FDA-Public Use
  Company Number: None

PATIENT
  Age: 38 Year
  Sex: Female

DRUGS (11)
  1. XOLAIR [Suspect]
     Active Substance: OMALIZUMAB
     Indication: Asthma
     Dosage: FREQUENCY : MONTHLY;?
     Route: 058
     Dates: start: 20231010
  2. ALBUTEROL AER HFA [Concomitant]
  3. ALBUTEROL NEB 0.083% [Concomitant]
  4. JARDIANCE [Concomitant]
     Active Substance: EMPAGLIFLOZIN
  5. METHOTREXATE [Concomitant]
     Active Substance: METHOTREXATE
  6. PREDNISONE [Concomitant]
     Active Substance: PREDNISONE
  7. PROTONIX [Concomitant]
     Active Substance: PANTOPRAZOLE SODIUM
  8. TRELEGY AER [Concomitant]
  9. TRULICITY [Concomitant]
     Active Substance: DULAGLUTIDE
  10. VITAMIN D [Concomitant]
     Active Substance: VITAMIN D NOS
  11. XANAX [Concomitant]
     Active Substance: ALPRAZOLAM

REACTIONS (1)
  - Pneumonia [None]

NARRATIVE: CASE EVENT DATE: 20240125
